FAERS Safety Report 15213363 (Version 1)
Quarter: 2018Q3

REPORT INFORMATION
  Report Type: Spontaneous
  Country: JP (occurrence: JP)
  Receive Date: 20180730
  Receipt Date: 20180730
  Transmission Date: 20181010
  Serious: Yes (Other)
  Sender: FDA-Public Use
  Company Number: JP-MACLEODS PHARMACEUTICALS US LTD-MAC2017006240

PATIENT

DRUGS (2)
  1. RIZATRIPTAN. [Suspect]
     Active Substance: RIZATRIPTAN
     Indication: BLINDNESS
  2. RIZATRIPTAN. [Suspect]
     Active Substance: RIZATRIPTAN
     Indication: MIGRAINE
     Dosage: UNK
     Route: 065

REACTIONS (4)
  - Feeling abnormal [Unknown]
  - Drug ineffective [Unknown]
  - Nausea [Unknown]
  - Anxiety [Unknown]
